FAERS Safety Report 4710358-1 (Version None)
Quarter: 2005Q3

REPORT INFORMATION
  Report Type: 
  Country: None (occurrence: None)
  Receive Date: 20050707
  Receipt Date: 20050628
  Transmission Date: 20060218
  Serious: Yes (Hospitalization, Other)
  Sender: FDA-Public Use
  Company Number: 2005-05-2108

PATIENT
  Age: 41 Year
  Sex: Male

DRUGS (3)
  1. PEG-INTERFERON INJECTABLE POWDER [Suspect]
     Indication: HEPATITIS C
     Dosage: 150 MCG QW SUBCUTANEOUS
     Route: 058
     Dates: start: 20041027, end: 20041217
  2. REBETOL [Suspect]
     Indication: HEPATITIS C
     Dosage: 1200 MG ORAL
     Route: 048
     Dates: end: 20041217
  3. CLORDESMETHYLDIAZEPAM [Concomitant]

REACTIONS (11)
  - ACUTE PSYCHOSIS [None]
  - ANXIETY [None]
  - DELIRIUM [None]
  - DISSOCIATION [None]
  - FEELING ABNORMAL [None]
  - INCOHERENT [None]
  - PERSECUTORY DELUSION [None]
  - PSYCHOMOTOR HYPERACTIVITY [None]
  - PSYCHOTIC DISORDER [None]
  - REFUSAL OF TREATMENT BY PATIENT [None]
  - STRESS [None]
